FAERS Safety Report 15653750 (Version 2)
Quarter: 2018Q4

REPORT INFORMATION
  Report Type: Spontaneous
  Country: US (occurrence: US)
  Receive Date: 20181124
  Receipt Date: 20181231
  Transmission Date: 20190205
  Serious: Yes (Other)
  Sender: FDA-Public Use
  Company Number: US-JNJFOC-20181030690

PATIENT

DRUGS (2)
  1. LEVAQUIN [Suspect]
     Active Substance: LEVOFLOXACIN
     Indication: COLITIS
     Route: 048
  2. LEVAQUIN [Suspect]
     Active Substance: LEVOFLOXACIN
     Indication: COLITIS
     Route: 042

REACTIONS (11)
  - Hypoaesthesia [Unknown]
  - Gastric disorder [Unknown]
  - Visual impairment [Unknown]
  - Uterine leiomyoma [Unknown]
  - Hypoacusis [Unknown]
  - Eyelid ptosis [Unknown]
  - Chronic inflammatory demyelinating polyradiculoneuropathy [Unknown]
  - Connective tissue disorder [Unknown]
  - Tendon rupture [Unknown]
  - Dysphagia [Unknown]
  - Eye pain [Unknown]
